FAERS Safety Report 21819292 (Version 1)
Quarter: 2023Q1

REPORT INFORMATION
  Report Type: Spontaneous
  Country: US (occurrence: US)
  Receive Date: 20230104
  Receipt Date: 20230104
  Transmission Date: 20230418
  Serious: No
  Sender: FDA-Public Use
  Company Number: US-SK LIFE SCIENCE, INC-SKPVG-2022-000673

PATIENT

DRUGS (2)
  1. XCOPRI [Suspect]
     Active Substance: CENOBAMATE
     Indication: Product used for unknown indication
     Dosage: WENT THROUGH THE FIRST 2 TITRATION PACKS
     Route: 065
  2. XCOPRI [Suspect]
     Active Substance: CENOBAMATE
     Dosage: MAINTENANCE DOSE 100 MILLIGRAM
     Route: 065

REACTIONS (3)
  - Fluid retention [Unknown]
  - Chills [Unknown]
  - Somnolence [Unknown]
